FAERS Safety Report 10610614 (Version 2)
Quarter: 2014Q4

REPORT INFORMATION
  Report Type: Spontaneous
  Country: IT (occurrence: IT)
  Receive Date: 20141126
  Receipt Date: 20141202
  Transmission Date: 20150529
  Serious: Yes (Hospitalization)
  Sender: FDA-Public Use
  Company Number: PHHY2014IT151658

PATIENT
  Age: 86 Year
  Sex: Male

DRUGS (4)
  1. MICARDIS PLUS [Concomitant]
     Active Substance: HYDROCHLOROTHIAZIDE\TELMISARTAN
     Dosage: 1 DF, UNK
     Route: 048
  2. FELODIPINE. [Concomitant]
     Active Substance: FELODIPINE
     Dosage: 5 MG, UNK
     Route: 048
  3. FUROSEMIDE. [Suspect]
     Active Substance: FUROSEMIDE
     Dosage: 5 DF, ONCE/SINGLE
     Route: 048
     Dates: start: 20141027, end: 20141027
  4. TICLODIPINE [Concomitant]
     Dosage: 250 MG, UNK
     Route: 048

REACTIONS (6)
  - Drug abuse [Unknown]
  - Hypokalaemia [Unknown]
  - Metabolic alkalosis [Unknown]
  - Hyponatraemia [Unknown]
  - Abasia [Unknown]
  - Asthenia [Unknown]

NARRATIVE: CASE EVENT DATE: 20141027
